FAERS Safety Report 8352821-0 (Version None)
Quarter: 2012Q2

REPORT INFORMATION
  Report Type: 
  Country: None (occurrence: None)
  Receive Date: 20120511
  Receipt Date: 20120307
  Transmission Date: 20120825
  Serious: Yes (Death, Other)
  Sender: FDA-Public Use
  Company Number: US-JNJFOC-20120306540

PATIENT
  Age: 79 Year
  Sex: Female

DRUGS (4)
  1. PALIPERIDONE [Suspect]
     Route: 030
  2. PALIPERIDONE [Suspect]
     Indication: SCHIZOPHRENIA, PARANOID TYPE
     Route: 030
  3. PALIPERIDONE [Suspect]
     Route: 030
  4. PALIPERIDONE [Suspect]
     Route: 030

REACTIONS (5)
  - TOXIC ENCEPHALOPATHY [None]
  - RESTING TREMOR [None]
  - RESPIRATORY DISTRESS [None]
  - CATATONIA [None]
  - DYSKINESIA [None]
